FAERS Safety Report 8289285-1 (Version None)
Quarter: 2012Q2

REPORT INFORMATION
  Report Type: 
  Country: None (occurrence: None)
  Receive Date: 20120417
  Receipt Date: 20120411
  Transmission Date: 20120825
  Serious: Yes (Hospitalization, Other)
  Sender: FDA-Public Use
  Company Number: PHHY2012JP030839

PATIENT

DRUGS (3)
  1. LAMOTRGINE [Suspect]
     Indication: CONVULSION
     Dosage: DOSE INCREASED
  2. KETAMINE HCL [Suspect]
     Indication: SEDATIVE THERAPY
  3. MIDAZOLAM [Suspect]
     Indication: SEDATIVE THERAPY

REACTIONS (15)
  - PYREXIA [None]
  - RESPIRATORY RATE INCREASED [None]
  - HUMAN HERPESVIRUS 6 INFECTION [None]
  - CYTOMEGALOVIRUS INFECTION [None]
  - DRUG RASH WITH EOSINOPHILIA AND SYSTEMIC SYMPTOMS [None]
  - CHAPPED LIPS [None]
  - HEPATIC FUNCTION ABNORMAL [None]
  - HEART RATE INCREASED [None]
  - HYPERTHYROIDISM [None]
  - RASH [None]
  - RASH PAPULAR [None]
  - EPSTEIN-BARR VIRUS INFECTION [None]
  - OEDEMA [None]
  - JAUNDICE [None]
  - HYPOTHYROIDISM [None]
